FAERS Safety Report 5192472-2 (Version None)
Quarter: 2006Q4

REPORT INFORMATION
  Report Type: 
  Country: None (occurrence: None)
  Receive Date: 20061220
  Receipt Date: 20061207
  Transmission Date: 20070319
  Serious: Yes (Other)
  Sender: FDA-Public Use
  Company Number: 232219

PATIENT
  Age: 61 Year
  Sex: Male
  Weight: 115.6 kg

DRUGS (12)
  1. RITUXAN [Suspect]
     Indication: RHEUMATOID ARTHRITIS
     Dates: start: 20060608
  2. DRUG UNKNOWN (GENERIC COMPONENT(S) NOT KNOWN) [Suspect]
     Indication: DRUG USE FOR UNKNOWN INDICATION
  3. CELLCEPT [Concomitant]
  4. CRESTOR [Concomitant]
  5. AVAPRO [Concomitant]
  6. METFORMIN HCL [Concomitant]
  7. VICODIN [Concomitant]
  8. ASPIRIN [Concomitant]
  9. GARLIC TABS (GARLIC) [Concomitant]
  10. VITAMIN E [Concomitant]
  11. FLEXERIL [Concomitant]
  12. PREDNISONE TAB [Concomitant]

REACTIONS (1)
  - JOINT SWELLING [None]
